FAERS Safety Report 7628745-0 (Version None)
Quarter: 2011Q3

REPORT INFORMATION
  Report Type: 
  Country: None (occurrence: None)
  Receive Date: 20110714
  Receipt Date: 20110711
  Transmission Date: 20111222
  Serious: Yes (Other)
  Sender: FDA-Public Use
  Company Number: 2011SP032078

PATIENT
  Age: 32 Year
  Sex: Female
  Weight: 62 kg

DRUGS (5)
  1. AVASTIN [Concomitant]
  2. TEMODAL [Suspect]
     Indication: CHEMOTHERAPY
     Dosage: 100 MG, TID, PO
     Route: 048
     Dates: start: 20110501
  3. TEMODAL [Suspect]
     Indication: CHEMOTHERAPY
     Dosage: 100 MG, TID, PO
     Route: 048
     Dates: start: 20100101, end: 20100101
  4. LEVEMIR [Concomitant]
  5. CLORANA [Concomitant]

REACTIONS (5)
  - WRONG TECHNIQUE IN DRUG USAGE PROCESS [None]
  - CONVULSION [None]
  - DYSPHAGIA [None]
  - HYPERTENSION [None]
  - DRUG INEFFECTIVE [None]
